FAERS Safety Report 4460286-4 (Version None)
Quarter: 2004Q3

REPORT INFORMATION
  Report Type: 
  Country: None (occurrence: None)
  Receive Date: 20040928
  Receipt Date: 20040301
  Transmission Date: 20050211
  Serious: No
  Sender: FDA-Public Use
  Company Number: US-GLAXOSMITHKLINE-A0500684A

PATIENT
  Age: 75 Year
  Sex: Male

DRUGS (11)
  1. SEREVENT [Suspect]
     Dosage: 1PUFF TWICE PER DAY
     Route: 055
     Dates: start: 20030701, end: 20040201
  2. ACCUPRIL [Concomitant]
  3. FLOMAX [Concomitant]
  4. HYDROCHLOROTHIAZIDE [Concomitant]
  5. ASPIRIN [Concomitant]
  6. VIOXX [Concomitant]
  7. COVERA-HS [Concomitant]
  8. COMBIVENT [Concomitant]
  9. FLONASE [Concomitant]
  10. PRAVACHOL [Concomitant]
  11. MULTI-VITAMIN [Concomitant]

REACTIONS (6)
  - ANXIETY [None]
  - COUGH [None]
  - DECREASED APPETITE [None]
  - DYSPEPSIA [None]
  - INSOMNIA [None]
  - PHARYNGOLARYNGEAL PAIN [None]
